FAERS Safety Report 11309066 (Version 3)
Quarter: 2015Q3

REPORT INFORMATION
  Report Type: Report from Study
  Country: CA (occurrence: CA)
  Receive Date: 20150724
  Receipt Date: 20150828
  Transmission Date: 20151125
  Serious: Yes (Other)
  Sender: FDA-Public Use
  Company Number: CA-PFIZER INC-2014264010

PATIENT
  Age: 66 Year
  Sex: Female
  Weight: 104 kg

DRUGS (9)
  1. PILOCARPINE. [Concomitant]
     Active Substance: PILOCARPINE
     Indication: DRY MOUTH
     Dosage: UNK
     Dates: start: 20140417
  2. PALBOCICLIB [Suspect]
     Active Substance: PALBOCICLIB
     Indication: BREAST CANCER
     Dosage: 125 MG, CYCLIC, ONCE DAILY 3 WEEKS ON/1 WEEK OFF EVERY 28 DAY CYCLE
     Route: 048
     Dates: start: 20140611, end: 20140723
  3. PALBOCICLIB [Suspect]
     Active Substance: PALBOCICLIB
     Dosage: 100 MG, ONCE DAILY, 3 WEEKS ON, 1 WEEK OFF EVERY 28 DAY CYCLE
     Route: 048
     Dates: start: 20140829, end: 20140904
  4. ZOPICLONE [Concomitant]
     Active Substance: ZOPICLONE
     Indication: INSOMNIA
     Dosage: AS NEEDED
     Dates: start: 20140417
  5. LETROZOLE. [Suspect]
     Active Substance: LETROZOLE
     Indication: BREAST CANCER
     Dosage: 2.5 MG, 1X/DAY
     Route: 048
     Dates: start: 20140611, end: 20140924
  6. IBUPROFEN. [Concomitant]
     Active Substance: IBUPROFEN
     Indication: PELVIC PAIN
     Dosage: 400 MG, 3X/DAY
     Route: 048
     Dates: start: 20130501, end: 20140617
  7. DENOSUMAB [Concomitant]
     Active Substance: DENOSUMAB
     Indication: METASTASES TO BONE
     Dosage: UNK
     Dates: start: 20140515
  8. DENOSUMAB [Concomitant]
     Active Substance: DENOSUMAB
     Indication: HYPOCALCAEMIA
  9. IBUPROFEN. [Concomitant]
     Active Substance: IBUPROFEN
     Indication: BONE PAIN

REACTIONS (2)
  - Aspartate aminotransferase increased [Recovered/Resolved]
  - Alanine aminotransferase increased [Recovered/Resolved]

NARRATIVE: CASE EVENT DATE: 20140723
